FAERS Safety Report 24631381 (Version 1)
Quarter: 2024Q4

REPORT INFORMATION
  Report Type: Spontaneous
  Country: JP (occurrence: JP)
  Receive Date: 20241118
  Receipt Date: 20241118
  Transmission Date: 20250115
  Serious: Yes (Other)
  Sender: PFIZER
  Company Number: JP-PFIZER INC-PV202400146643

PATIENT
  Age: 8 Year
  Sex: Male

DRUGS (5)
  1. AMPICILLIN SODIUM\SULBACTAM SODIUM [Suspect]
     Active Substance: AMPICILLIN SODIUM\SULBACTAM SODIUM
     Indication: Lung abscess
     Dosage: UNK
  2. CLINDAMYCIN [Suspect]
     Active Substance: CLINDAMYCIN
     Indication: Lung abscess
     Dosage: UNK
  3. AMPICILLIN [Suspect]
     Active Substance: AMPICILLIN
     Indication: Pneumonia bacterial
     Dosage: UNK
  4. CEFOTAXIME [Suspect]
     Active Substance: CEFOTAXIME SODIUM
     Indication: Lung abscess
     Dosage: UNK
  5. VANCOMYCIN [Suspect]
     Active Substance: VANCOMYCIN
     Indication: Lung abscess
     Dosage: UNK

REACTIONS (1)
  - Haemophagocytic lymphohistiocytosis [Recovering/Resolving]
